FAERS Safety Report 7899043-5 (Version None)
Quarter: 2011Q4

REPORT INFORMATION
  Report Type: 
  Country: None (occurrence: None)
  Receive Date: 20111107
  Receipt Date: 20111027
  Transmission Date: 20120403
  Serious: Yes (Other)
  Sender: FDA-Public Use
  Company Number: US-ASTRAZENECA-2011SE65285

PATIENT
  Age: 78 Year
  Sex: Female

DRUGS (14)
  1. ALLOPURINOL [Concomitant]
     Route: 048
  2. WARFARIN SODIUM [Concomitant]
     Route: 048
  3. SPIRIVA [Concomitant]
     Dosage: 1 PUFF DAILY INH
  4. LEVOTHYROXINE SODIUM [Concomitant]
     Route: 048
  5. OXYCONTIN [Concomitant]
     Route: 048
  6. LASIX [Concomitant]
     Route: 048
  7. CARTIA XT [Concomitant]
     Route: 048
  8. PROAIR HFA [Concomitant]
     Dosage: 2 PUFFS DAILY INH
  9. ATENOLOL [Concomitant]
     Route: 048
  10. SYMBICORT [Suspect]
     Indication: CHRONIC OBSTRUCTIVE PULMONARY DISEASE
     Dosage: 2 PUFFS, DAILY
     Route: 055
  11. PRAVASTATIN SODIUM [Concomitant]
     Route: 048
  12. ASPIRIN [Concomitant]
     Route: 048
  13. KLOR-CON [Concomitant]
     Route: 048
  14. ESTRADIOL [Concomitant]
     Route: 048

REACTIONS (11)
  - LUNG NEOPLASM MALIGNANT [None]
  - RENAL FAILURE CHRONIC [None]
  - DIABETES MELLITUS [None]
  - DEPRESSION [None]
  - DYSPNOEA [None]
  - URINARY INCONTINENCE [None]
  - FAECAL INCONTINENCE [None]
  - EMPHYSEMA [None]
  - MUSCULAR WEAKNESS [None]
  - ATRIAL FIBRILLATION [None]
  - PULMONARY HYPERTENSION [None]
